FAERS Safety Report 10478245 (Version 1)
Quarter: 2014Q3

REPORT INFORMATION
  Report Type: Spontaneous
  Country: US (occurrence: US)
  Receive Date: 20140926
  Receipt Date: 20140926
  Transmission Date: 20150326
  Serious: No
  Sender: FDA-Public Use
  Company Number: US-BAYER-2014-142765

PATIENT
  Sex: Female

DRUGS (1)
  1. MIRENA [Suspect]
     Active Substance: LEVONORGESTREL
     Dosage: 20 MCG/24HR, CONT
     Route: 015
     Dates: start: 20070222, end: 20110919

REACTIONS (6)
  - Dysfunctional uterine bleeding [None]
  - Vaginal haemorrhage [None]
  - Emotional distress [None]
  - Abdominal pain lower [None]
  - Injury [None]
  - Abdominal pain [None]

NARRATIVE: CASE EVENT DATE: 20110430
